FAERS Safety Report 8310361-9 (Version None)
Quarter: 2012Q2

REPORT INFORMATION
  Report Type: 
  Country: None (occurrence: None)
  Receive Date: 20120425
  Receipt Date: 20120417
  Transmission Date: 20120825
  Serious: Yes (Hospitalization)
  Sender: FDA-Public Use
  Company Number: FR-BAYER-2012-039729

PATIENT
  Age: 71 Year
  Sex: Female

DRUGS (8)
  1. MORPHINE SULFATE [Concomitant]
     Dosage: 1 DF, BID
     Route: 048
     Dates: start: 20120127, end: 20120130
  2. ATACAND [Concomitant]
     Dosage: 1 DF, QD
     Route: 048
  3. MORPHINE SULFATE [Concomitant]
     Dosage: 1 DF, TID
     Route: 048
     Dates: start: 20120124, end: 20120126
  4. AUGMENTIN '125' [Concomitant]
     Dosage: 1 DF, TID
     Dates: start: 20120130, end: 20120209
  5. NAPROXEN SODIUM [Suspect]
     Dosage: 1 DF, QD
     Route: 048
     Dates: start: 20120127, end: 20120207
  6. XARELTO [Suspect]
     Indication: THROMBOSIS PROPHYLAXIS
     Dosage: 1 DF, QD
     Route: 048
     Dates: start: 20120120, end: 20120207
  7. FERROUS SULFATE TAB [Concomitant]
     Dosage: 1 DF, BID
     Route: 048
     Dates: start: 20120130, end: 20120209
  8. GLUCOPHAGE [Concomitant]
     Dosage: 1 DF, BID
     Route: 048

REACTIONS (1)
  - THROMBOCYTOSIS [None]
